FAERS Safety Report 7864860-4 (Version None)
Quarter: 2011Q4

REPORT INFORMATION
  Report Type: 
  Country: None (occurrence: None)
  Receive Date: 20111028
  Receipt Date: 20100907
  Transmission Date: 20120403
  Serious: No
  Sender: FDA-Public Use
  Company Number: US-GLAXOSMITHKLINE-A0879868A

PATIENT
  Age: 60 Year
  Sex: Female
  Weight: 160.5 kg

DRUGS (3)
  1. HYDROCHLOROTHIAZIDE [Concomitant]
  2. ADVAIR DISKUS 100/50 [Suspect]
     Indication: ASTHMA
     Dosage: 1PUFF TWICE PER DAY
     Route: 055
     Dates: start: 20000101
  3. DIOVAN [Concomitant]

REACTIONS (4)
  - OROPHARYNGEAL PAIN [None]
  - SECRETION DISCHARGE [None]
  - DYSPHONIA [None]
  - ILL-DEFINED DISORDER [None]
